FAERS Safety Report 6589185-9 (Version None)
Quarter: 2010Q1

REPORT INFORMATION
  Report Type: 
  Country: None (occurrence: None)
  Receive Date: 20100218
  Receipt Date: 20100210
  Transmission Date: 20100710
  Serious: Yes (Hospitalization)
  Sender: FDA-Public Use
  Company Number: US-ABBOTT-10P-163-0625646-00

PATIENT
  Weight: 72 kg

DRUGS (7)
  1. VICODIN [Suspect]
     Indication: MIGRAINE
     Dates: start: 20090303, end: 20090530
  2. XANAX [Suspect]
     Indication: DRUG USE FOR UNKNOWN INDICATION
     Dates: start: 20090203, end: 20090530
  3. ALISKIREN, AMLODIPINE, HCTZ [Suspect]
     Indication: ESSENTIAL HYPERTENSION
     Route: 048
     Dates: start: 20080715, end: 20090528
  4. ALISKIREN, AMLODIPINE, HCTZ [Suspect]
     Route: 048
     Dates: start: 20080715, end: 20090528
  5. ALISKIREN, AMLODIPINE, HCTZ [Suspect]
     Route: 048
     Dates: start: 20080715, end: 20090528
  6. ALISKIREN, AMLODIPINE, HCTZ [Suspect]
     Route: 048
     Dates: start: 20080715, end: 20090528
  7. DARVOCET-N 100 [Concomitant]
     Indication: DRUG USE FOR UNKNOWN INDICATION
     Dates: start: 20090323, end: 20090530

REACTIONS (1)
  - DRUG DEPENDENCE [None]
